FAERS Safety Report 8495777 (Version 5)
Quarter: 2013Q3

REPORT INFORMATION
  Report Type: Spontaneous
  Country: CA (occurrence: CA)
  Receive Date: 20120405
  Receipt Date: 20130718
  Transmission Date: 20140515
  Serious: Yes (Hospitalization, Other)
  Sender: FDA-Public Use
  Company Number: CA-SANOFI-AVENTIS-2012SA015129

PATIENT
  Age: 62 Year
  Sex: Female

DRUGS (15)
  1. PLAVIX [Suspect]
     Indication: PRODUCT USED FOR UNKNOWN INDICATION
     Route: 065
  2. ASPIRIN [Suspect]
     Indication: PRODUCT USED FOR UNKNOWN INDICATION
     Route: 065
  3. METFORMIN [Concomitant]
     Indication: TYPE 2 DIABETES MELLITUS
  4. LANTUS [Concomitant]
     Indication: TYPE 2 DIABETES MELLITUS
  5. NOVORAPID [Concomitant]
     Indication: TYPE 2 DIABETES MELLITUS
  6. HEPARIN [Concomitant]
     Dosage: DOSE:5000 UNIT(S)
     Dates: start: 20101213, end: 20101213
  7. PANTOPRAZOLE [Concomitant]
     Dates: start: 20111225, end: 20111227
  8. PIPERACILLIN/TAZOBACTAM [Concomitant]
     Dates: start: 20111226, end: 20111228
  9. AMOXICILLIN/CLAVULANIC ACID [Concomitant]
     Dates: start: 20111228, end: 20120107
  10. LANSOPRAZOLE [Concomitant]
     Dates: start: 20111226
  11. ANGIOTENSIN II ANTAGONISTS [Concomitant]
  12. HMG COA REDUCTASE INHIBITORS [Concomitant]
  13. ORAL ANTIDIABETICS [Concomitant]
     Indication: TYPE 2 DIABETES MELLITUS
     Dates: start: 20101027
  14. ANTIHYPERTENSIVES [Concomitant]
  15. PLACEBO [Concomitant]
     Indication: TYPE 2 DIABETES MELLITUS
     Dates: start: 20101027, end: 20130313

REACTIONS (8)
  - Hepatic neoplasm [Recovered/Resolved]
  - Gastrointestinal angiodysplasia [Recovered/Resolved]
  - Haematemesis [Recovered/Resolved]
  - Melaena [Recovered/Resolved]
  - Pyrexia [Recovered/Resolved]
  - Haemoglobin decreased [Recovered/Resolved]
  - General physical health deterioration [Recovered/Resolved]
  - Upper gastrointestinal haemorrhage [Recovered/Resolved]
